FAERS Safety Report 8200212-5 (Version None)
Quarter: 2012Q1

REPORT INFORMATION
  Report Type: 
  Country: None (occurrence: None)
  Receive Date: 20120312
  Receipt Date: 20120306
  Transmission Date: 20120608
  Serious: Yes (Hospitalization)
  Sender: FDA-Public Use
  Company Number: DE-AMGEN-DEUSP2012012457

PATIENT
  Sex: Male

DRUGS (14)
  1. DOXORUBICIN HCL [Suspect]
     Indication: B-CELL LYMPHOMA
     Dosage: 100 MG, UNK
     Route: 042
     Dates: start: 20120208
  2. VINCRISTINE [Suspect]
     Indication: B-CELL LYMPHOMA
     Dosage: 2 MG, UNK
     Route: 042
     Dates: start: 20120208
  3. SIMVASTATIN [Concomitant]
     Dosage: 40 MG, UNK
     Dates: start: 20120123
  4. BISOPROLOL FUMARATE [Concomitant]
     Dosage: 5 MG, QD
     Route: 048
     Dates: start: 20120123
  5. GRANISETRON [Concomitant]
     Indication: VOMITING
     Dosage: 3 MG, QD
     Route: 042
     Dates: start: 20120208
  6. PREDNISOLONE [Suspect]
     Indication: B-CELL LYMPHOMA
     Dosage: 100 MG, UNK
     Route: 048
     Dates: start: 20120208
  7. ALLOPURINOL [Concomitant]
     Dosage: 300 MG, QD
     Route: 048
     Dates: start: 20120123
  8. COTRIM DS [Concomitant]
     Dosage: 960 MG, BID
     Route: 048
     Dates: start: 20120125
  9. MABTHERA [Suspect]
     Indication: B-CELL LYMPHOMA
     Dosage: 750 MG, UNK
     Route: 042
     Dates: start: 20120207
  10. ESIDRIX [Concomitant]
     Indication: POLYURIA
     Dosage: 2.5 MG, QD
     Route: 048
     Dates: start: 20120123
  11. RAMIPRIL [Concomitant]
     Dosage: 5 MG, QD
     Route: 048
     Dates: start: 20120123
  12. CYCLOPHOSPHAMIDE [Suspect]
     Indication: B-CELL LYMPHOMA
     Dosage: 1500 MG, UNK
     Route: 042
     Dates: start: 20120208
  13. SODIUM CHLORIDE [Concomitant]
     Dosage: 1 G, QID
     Route: 048
     Dates: start: 20120123
  14. NEULASTA [Suspect]
     Indication: CHEMOTHERAPY
     Dosage: 6 MG, UNK
     Route: 058
     Dates: start: 20120211

REACTIONS (1)
  - INFECTION [None]
